FAERS Safety Report 16129459 (Version 1)
Quarter: 2019Q1

REPORT INFORMATION
  Report Type: Spontaneous
  Country: NL (occurrence: NL)
  Receive Date: 20190328
  Receipt Date: 20190328
  Transmission Date: 20190418
  Serious: Yes (Congenital Anomaly)
  Sender: FDA-Public Use
  Company Number: NL-JNJFOC-20190329598

PATIENT
  Sex: Female

DRUGS (6)
  1. SULFASALAZINE. [Concomitant]
     Active Substance: SULFASALAZINE
     Dosage: MOTHER^S DOSING
     Route: 064
     Dates: start: 201506, end: 201709
  2. REMICADE [Suspect]
     Active Substance: INFLIXIMAB
     Indication: PRODUCT USED FOR UNKNOWN INDICATION
     Dosage: MOTHER^S DOSING
     Route: 064
  3. PREDNISON [Concomitant]
     Active Substance: PREDNISONE
     Dosage: MOTHER^S DOSING
     Route: 064
     Dates: start: 201709
  4. CERTOLIZUMAB PEGOL [Suspect]
     Active Substance: CERTOLIZUMAB PEGOL
     Indication: RHEUMATOID ARTHRITIS
     Dosage: MOTHER^S DOSING
     Route: 064
  5. HYDROXYCHLOROQUINE [Concomitant]
     Active Substance: HYDROXYCHLOROQUINE
     Dosage: MOTHER^S DOSING
     Route: 064
     Dates: start: 201610, end: 201709
  6. SUMATRIPTAN. [Concomitant]
     Active Substance: SUMATRIPTAN
     Dosage: MOTHER^S DOSING
     Route: 064

REACTIONS (2)
  - Neonatal neuroblastoma [Unknown]
  - Foetal exposure during pregnancy [Recovered/Resolved]
